FAERS Safety Report 14347010 (Version 1)
Quarter: 2018Q1

REPORT INFORMATION
  Report Type: Spontaneous
  Country: US (occurrence: US)
  Receive Date: 20180103
  Receipt Date: 20180103
  Transmission Date: 20180509
  Serious: Yes (Other)
  Sender: FDA-Public Use
  Company Number: US-IMPAX LABORATORIES, INC-2017-IPXL-03795

PATIENT
  Age: 33 Year
  Sex: Female

DRUGS (4)
  1. PITOCIN [Concomitant]
     Active Substance: OXYTOCIN
     Indication: PRODUCT USED FOR UNKNOWN INDICATION
     Dosage: UNK
     Route: 042
  2. ONDANSETRON [Concomitant]
     Active Substance: ONDANSETRON
     Indication: PRODUCT USED FOR UNKNOWN INDICATION
     Dosage: UNK
     Route: 042
  3. MORPHINE SULFATE EXTENDED-RELEASE [Suspect]
     Active Substance: MORPHINE SULFATE
     Indication: SPINAL ANAESTHESIA
     Dosage: 150 ?G, UNK
     Route: 037
  4. BUPIVICAINE [Concomitant]
     Active Substance: BUPIVACAINE
     Indication: SPINAL ANAESTHESIA
     Dosage: 1.5 ML (0.75 %), UNK
     Route: 037

REACTIONS (4)
  - Pruritus [Recovering/Resolving]
  - Nausea [Recovering/Resolving]
  - Maternal exposure during delivery [Unknown]
  - Hypothermia [Recovering/Resolving]
